FAERS Safety Report 9969226 (Version 2)
Quarter: 2014Q2

REPORT INFORMATION
  Report Type: Spontaneous
  Country: BR (occurrence: BR)
  Receive Date: 20140306
  Receipt Date: 20140403
  Transmission Date: 20141212
  Serious: Yes (Hospitalization)
  Sender: FDA-Public Use
  Company Number: BR-JNJFOC-20140214984

PATIENT
  Age: 18 Year
  Sex: Female
  Weight: 50 kg

DRUGS (4)
  1. TYLENOL 750 [Suspect]
     Route: 048
  2. TYLENOL 750 [Suspect]
     Indication: SUICIDE ATTEMPT
     Dosage: 10 TABLETS
     Route: 048
     Dates: start: 20140220, end: 20140220
  3. DORFLEX [Suspect]
     Indication: SUICIDE ATTEMPT
     Route: 048
     Dates: start: 20140220, end: 20140220
  4. CLONAZEPAM [Suspect]
     Indication: SUICIDE ATTEMPT
     Route: 048

REACTIONS (5)
  - Suicide attempt [Recovered/Resolved]
  - Intentional overdose [Recovered/Resolved]
  - Dizziness [Not Recovered/Not Resolved]
  - Social avoidant behaviour [Not Recovered/Not Resolved]
  - Dysuria [Not Recovered/Not Resolved]
